FAERS Safety Report 7394807-9 (Version None)
Quarter: 2011Q2

REPORT INFORMATION
  Report Type: 
  Country: None (occurrence: None)
  Receive Date: 20110405
  Receipt Date: 20110329
  Transmission Date: 20111010
  Serious: Yes (Death)
  Sender: FDA-Public Use
  Company Number: A0773174A

PATIENT
  Age: 80 Year
  Sex: Male
  Weight: 86.4 kg

DRUGS (12)
  1. METOPROLOL TARTRATE [Concomitant]
  2. PROSCAR [Concomitant]
  3. AMARYL [Concomitant]
  4. METFORMIN [Concomitant]
  5. FUROSEMIDE [Concomitant]
  6. ASPIRIN [Concomitant]
  7. WARFARIN [Concomitant]
  8. DIGOXIN [Concomitant]
  9. AVANDIA [Suspect]
     Indication: DIABETES MELLITUS
     Dosage: 4MG PER DAY
     Route: 048
     Dates: start: 20050310, end: 20060529
  10. FLOMAX [Concomitant]
  11. QUINAPRIL [Concomitant]
  12. GLUCOTROL XL [Concomitant]

REACTIONS (3)
  - MYOCARDIAL INFARCTION [None]
  - SICK SINUS SYNDROME [None]
  - CARDIAC ARREST [None]
